FAERS Safety Report 8058254-9 (Version None)
Quarter: 2012Q1

REPORT INFORMATION
  Report Type: 
  Country: None (occurrence: None)
  Receive Date: 20120112
  Receipt Date: 20120103
  Transmission Date: 20120608
  Serious: Yes (Hospitalization)
  Sender: FDA-Public Use
  Company Number: 2012SP000344

PATIENT
  Age: 74 Year
  Sex: Female

DRUGS (12)
  1. ACETAMINOPHEN [Suspect]
     Indication: PRODUCT USED FOR UNKNOWN INDICATION
     Dosage: 1000 MG; TID; PO
     Route: 048
  2. ALDALIX [Suspect]
     Indication: PRODUCT USED FOR UNKNOWN INDICATION
     Dosage: 1 DF; QD; PO
     Route: 048
  3. CALCIUM CARBONATE [Suspect]
     Indication: PRODUCT USED FOR UNKNOWN INDICATION
     Dosage: 1000 MG; QD; PO
     Route: 048
     Dates: end: 20111106
  4. SINGULAIR [Suspect]
     Indication: PRODUCT USED FOR UNKNOWN INDICATION
     Dosage: 10 MG; QD; PO
     Route: 048
  5. RHINOCORT [Suspect]
     Indication: PRODUCT USED FOR UNKNOWN INDICATION
     Dosage: 2 DF; QD; IS
  6. NOVICOL (NOVICOL /01749801/) [Suspect]
     Indication: PRODUCT USED FOR UNKNOWN INDICATION
     Dosage: 3 DF; QD; PO
     Route: 048
  7. FOSAVANCE [Suspect]
     Indication: PRODUCT USED FOR UNKNOWN INDICATION
     Dosage: 1 DF; QW; PO
     Route: 048
  8. CODEINE PHOSPHATE AND ACETAMINOPHEN [Suspect]
     Indication: PRODUCT USED FOR UNKNOWN INDICATION
     Dosage: 6 DF; QD; PO
     Route: 048
     Dates: end: 20111106
  9. SERETIDINE DISKUS (SERETIDE /01420901/) [Suspect]
     Indication: PRODUCT USED FOR UNKNOWN INDICATION
     Dosage: 4 DF; QD; INH
     Route: 055
  10. ZOPICLONE [Suspect]
     Indication: PRODUCT USED FOR UNKNOWN INDICATION
     Dosage: QD; PO
     Route: 048
  11. DESLORATADINE [Suspect]
     Indication: PRODUCT USED FOR UNKNOWN INDICATION
     Dosage: 5 MG; QD; PO
     Route: 048
  12. GINKOR FORT (GINKOR PROCTO) [Suspect]
     Indication: PRODUCT USED FOR UNKNOWN INDICATION
     Dosage: 2 DF; QD; PO
     Route: 048

REACTIONS (5)
  - DIARRHOEA [None]
  - DELIRIUM [None]
  - CONFUSIONAL STATE [None]
  - SOMNOLENCE [None]
  - FALL [None]
